FAERS Safety Report 8116840 (Version 4)
Quarter: 2012Q4

REPORT INFORMATION
  Report Type: 
  Country: US (occurrence: US)
  Receive Date: 20110901
  Receipt Date: 20121207
  Transmission Date: 20130627
  Serious: Yes (Other)
  Sender: FDA-Public Use
  Company Number: US-ASTRAZENECA-2011SE50949

PATIENT
  Age: 54 Year
  Sex: Female

DRUGS (2)
  1. NEXIUM [Suspect]
     Route: 048
  2. NEXIUM [Suspect]
     Dosage: TWO TIMES A DAY
     Route: 048

REACTIONS (6)
  - Gastrointestinal ulcer haemorrhage [Unknown]
  - Large intestinal ulcer [Unknown]
  - Oesophageal ulcer [Unknown]
  - Lower limb fracture [Unknown]
  - Ankle fracture [Unknown]
  - Drug dose omission [Unknown]
